FAERS Safety Report 9567869 (Version 1)
Quarter: 2013Q3

REPORT INFORMATION
  Report Type: Spontaneous
  Country: US (occurrence: US)
  Receive Date: 20130930
  Receipt Date: 20130930
  Transmission Date: 20140515
  Serious: No
  Sender: FDA-Public Use
  Company Number: US-AMGEN-USASP2013056926

PATIENT
  Age: 58 Year
  Sex: Male
  Weight: 65.76 kg

DRUGS (9)
  1. ENBREL [Suspect]
     Indication: PRODUCT USED FOR UNKNOWN INDICATION
     Dosage: 50 MG, QWK
     Route: 058
  2. MULTIVITAMINS, PLAIN [Concomitant]
     Dosage: UNK
  3. ZOCOR [Concomitant]
     Dosage: 10 MG, UNK
  4. DICLOFENAC POTASSIUM [Concomitant]
     Dosage: 50 MG, UNK
  5. IBUPROFEN [Concomitant]
     Dosage: 200 MG, UNK
  6. FISH OIL [Concomitant]
     Dosage: UNK
  7. FIBER [Concomitant]
     Dosage: UNK
  8. ACETAMINOPHEN [Concomitant]
     Dosage: 650 MG, UNK
  9. GLUCOSAMINE/MSM [Concomitant]
     Dosage: UNK

REACTIONS (1)
  - Headache [Unknown]
